FAERS Safety Report 15014814 (Version 2)
Quarter: 2018Q3

REPORT INFORMATION
  Report Type: Spontaneous
  Country: US (occurrence: US)
  Receive Date: 20180615
  Receipt Date: 20180724
  Transmission Date: 20181010
  Serious: Yes (Hospitalization)
  Sender: FDA-Public Use
  Company Number: US-VIVIMED-2018SP004931

PATIENT

DRUGS (2)
  1. METRONIDAZOLE. [Suspect]
     Active Substance: METRONIDAZOLE
     Indication: SEPSIS
     Dosage: UNK
     Route: 065
  2. CEFTRIAXONE. [Concomitant]
     Active Substance: CEFTRIAXONE
     Indication: SEPSIS
     Dosage: UNK
     Route: 042

REACTIONS (10)
  - Respiratory failure [None]
  - Multiple organ dysfunction syndrome [None]
  - Status epilepticus [Recovered/Resolved]
  - Confusional state [Unknown]
  - Neurotoxicity [Unknown]
  - Dysmetria [Unknown]
  - Dizziness [Unknown]
  - Ataxia [Unknown]
  - Tinnitus [Unknown]
  - Septic shock [None]
